FAERS Safety Report 20030159 (Version 2)
Quarter: 2025Q3

REPORT INFORMATION
  Report Type: Report from Study
  Country: US (occurrence: US)
  Receive Date: 20211103
  Receipt Date: 20250805
  Transmission Date: 20251020
  Serious: Yes (Other)
  Sender: TAKEDA
  Company Number: US-TAKEDA-2021TUS066339

PATIENT
  Sex: Female

DRUGS (2)
  1. ECALLANTIDE [Suspect]
     Active Substance: ECALLANTIDE
     Indication: Hereditary angioedema
  2. ECALLANTIDE [Suspect]
     Active Substance: ECALLANTIDE

REACTIONS (3)
  - COVID-19 [Recovering/Resolving]
  - Gastroenteritis viral [Recovering/Resolving]
  - Arthropod sting [Unknown]
